FAERS Safety Report 15652746 (Version 2)
Quarter: 2018Q4

REPORT INFORMATION
  Report Type: Spontaneous
  Country: US (occurrence: US)
  Receive Date: 20181123
  Receipt Date: 20181217
  Transmission Date: 20190205
  Serious: No
  Sender: FDA-Public Use
  Company Number: US-NOVOPROD-584806

PATIENT
  Age: 64 Year
  Sex: Male

DRUGS (4)
  1. LEVEMIR [Suspect]
     Active Substance: INSULIN DETEMIR
     Indication: TYPE 1 DIABETES MELLITUS
     Dosage: 25 U, UNK
     Route: 058
     Dates: start: 2014, end: 20180125
  2. NOVOLOG [Suspect]
     Active Substance: INSULIN ASPART
     Indication: TYPE 1 DIABETES MELLITUS
     Dosage: 14 UNITS PER MEAL
     Route: 058
     Dates: start: 2014
  3. NOVOLOG [Suspect]
     Active Substance: INSULIN ASPART
     Dosage: 18 UNITS PER MEAL
     Route: 058
     Dates: start: 201801
  4. FARXIGA [Concomitant]
     Active Substance: DAPAGLIFLOZIN PROPANEDIOL
     Indication: PRODUCT USED FOR UNKNOWN INDICATION
     Dosage: UNK
     Dates: start: 201802

REACTIONS (6)
  - Asthenia [Not Recovered/Not Resolved]
  - Blood glucose increased [Recovered/Resolved]
  - Arthralgia [Not Recovered/Not Resolved]
  - Fatigue [Not Recovered/Not Resolved]
  - Arthropathy [Not Recovered/Not Resolved]
  - Arthritis [Unknown]

NARRATIVE: CASE EVENT DATE: 20180125
